FAERS Safety Report 7538337-X (Version None)
Quarter: 2011Q2

REPORT INFORMATION
  Report Type: 
  Country: None (occurrence: None)
  Receive Date: 20110609
  Receipt Date: 20110607
  Transmission Date: 20111010
  Serious: Yes (Other)
  Sender: FDA-Public Use
  Company Number: US-PFIZER INC-2011111539

PATIENT
  Sex: Male
  Weight: 110 kg

DRUGS (3)
  1. CLARITIN-D 24 HOUR [Concomitant]
     Indication: BLOOD PRESSURE ABNORMAL
     Dosage: 200MG, DAILY
  2. CHANTIX [Suspect]
     Indication: SMOKING CESSATION THERAPY
     Dosage: 0.5MG, UNK
     Route: 048
     Dates: start: 20110501, end: 20110501
  3. CHANTIX [Suspect]
     Dosage: 1 MG, 2X/DAY
     Route: 048
     Dates: start: 20110501, end: 20110501

REACTIONS (9)
  - POLLAKIURIA [None]
  - SWELLING FACE [None]
  - RASH [None]
  - SWELLING [None]
  - ABNORMAL DREAMS [None]
  - HEADACHE [None]
  - SLEEP DISORDER [None]
  - MEMORY IMPAIRMENT [None]
  - LOCAL SWELLING [None]
